FAERS Safety Report 10363657 (Version 2)
Quarter: 2014Q3

REPORT INFORMATION
  Report Type: Spontaneous
  Country: GB (occurrence: GB)
  Receive Date: 20140805
  Receipt Date: 20140814
  Transmission Date: 20150326
  Serious: Yes (Other)
  Sender: FDA-Public Use
  Company Number: GB-BAUSCH-BL-2014-003625

PATIENT
  Sex: Female
  Weight: 3.04 kg

DRUGS (3)
  1. DICLOFENAC [Suspect]
     Active Substance: DICLOFENAC
     Dosage: 75- 150 MG DAILY
     Route: 064
  2. DICLOFENAC [Suspect]
     Active Substance: DICLOFENAC
     Indication: PRODUCT USED FOR UNKNOWN INDICATION
     Route: 064
  3. DICLOFENAC [Suspect]
     Active Substance: DICLOFENAC
     Route: 064

REACTIONS (6)
  - Cardiac failure [Recovered/Resolved]
  - Hydrops foetalis [Recovering/Resolving]
  - Ventricular hypertrophy [Unknown]
  - Ductus arteriosus premature closure [Unknown]
  - Maternal drugs affecting foetus [Unknown]
  - Right atrial dilatation [Unknown]
